FAERS Safety Report 16227466 (Version 1)
Quarter: 2019Q2

REPORT INFORMATION
  Report Type: Spontaneous
  Country: US (occurrence: US)
  Receive Date: 20190422
  Receipt Date: 20190422
  Transmission Date: 20190711
  Serious: Yes (Disabling)
  Sender: FDA-Public Use
  Company Number: None

PATIENT
  Age: 65 Year
  Sex: Male
  Weight: 74.84 kg

DRUGS (11)
  1. PERCOCET [Concomitant]
     Active Substance: ACETAMINOPHEN\OXYCODONE HYDROCHLORIDE
  2. MAXALT [Concomitant]
     Active Substance: RIZATRIPTAN BENZOATE
  3. FASTERMIDE [Concomitant]
  4. AMPHETAMINE [Concomitant]
     Active Substance: AMPHETAMINE
  5. VIT D [Concomitant]
     Active Substance: VITAMIN D NOS
  6. MAGNESIUM [Concomitant]
     Active Substance: MAGNESIUM
  7. EMGALITY [Suspect]
     Active Substance: GALCANEZUMAB-GNLM
  8. NAPROXEN. [Concomitant]
     Active Substance: NAPROXEN
  9. NEURONTIN [Concomitant]
     Active Substance: GABAPENTIN
  10. MILK THISTLE [Concomitant]
     Active Substance: DIETARY SUPPLEMENT\HERBALS\MILK THISTLE
  11. CO10 [Concomitant]

REACTIONS (1)
  - Headache [None]

NARRATIVE: CASE EVENT DATE: 20181101
